FAERS Safety Report 7544339-X (Version None)
Quarter: 2011Q2

REPORT INFORMATION
  Report Type: 
  Country: None (occurrence: None)
  Receive Date: 20110613
  Receipt Date: 20071204
  Transmission Date: 20111010
  Serious: Yes (Death, Hospitalization)
  Sender: FDA-Public Use
  Company Number: PHMT2007CA02172

PATIENT
  Sex: Female

DRUGS (1)
  1. SANDOSTATIN LAR [Suspect]
     Indication: PANCREATIC CARCINOMA
     Dosage: 20 MG EVERY 4 WEEKS
     Route: 030
     Dates: start: 20070911, end: 20071109

REACTIONS (3)
  - PYREXIA [None]
  - THROMBOSIS [None]
  - DEATH [None]
